FAERS Safety Report 20431106 (Version 1)
Quarter: 2022Q1

REPORT INFORMATION
  Report Type: Report from Study
  Country: US (occurrence: US)
  Receive Date: 20220204
  Receipt Date: 20220204
  Transmission Date: 20220423
  Serious: Yes (Life-Threatening, Hospitalization)
  Sender: FDA-Public Use
  Company Number: None

PATIENT

DRUGS (9)
  1. ONCASPAR [Suspect]
     Active Substance: PEGASPARGASE
     Indication: Acute lymphocytic leukaemia
     Dosage: 3450 UNK, DAY 4
     Route: 042
     Dates: start: 20161014, end: 20170331
  2. RUXOLITINIB [Suspect]
     Active Substance: RUXOLITINIB
     Indication: Acute lymphocytic leukaemia
     Dosage: 55 MG, BID
     Route: 048
     Dates: start: 20160903, end: 20170425
  3. RUXOLITINIB [Suspect]
     Active Substance: RUXOLITINIB
     Dosage: 55 MG, BID
     Route: 048
     Dates: start: 20170428
  4. VINCRISTINE SULFATE [Suspect]
     Active Substance: VINCRISTINE SULFATE
     Indication: Acute lymphocytic leukaemia
     Dosage: 2 MG, QD ON DAY 1, 8 AND 15
     Route: 042
     Dates: start: 20161014
  5. DEXAMETHASONE [Suspect]
     Active Substance: DEXAMETHASONE
     Indication: Acute lymphocytic leukaemia
     Dosage: 7 MG, BID
     Route: 048
     Dates: start: 20170328
  6. DOXORUBICIN [Suspect]
     Active Substance: DOXORUBICIN
     Indication: Acute lymphocytic leukaemia
     Dosage: 34.76 MG, QD ON DAY 1, 8 AND 15
     Route: 042
     Dates: start: 20170328
  7. METHOTREXATE [Suspect]
     Active Substance: METHOTREXATE
     Indication: Acute lymphocytic leukaemia
     Dosage: 15 MG, SINGLE
     Route: 037
     Dates: start: 20160930
  8. CYTARABINE [Suspect]
     Active Substance: CYTARABINE
     Indication: Acute lymphocytic leukaemia
     Dosage: 104 MG, SINGLE
     Route: 042
     Dates: start: 20160930, end: 20170505
  9. THIOGUANINE [Suspect]
     Active Substance: THIOGUANINE
     Indication: Acute lymphocytic leukaemia
     Dosage: 80 MG, QD
     Route: 065

REACTIONS (4)
  - Febrile neutropenia [Recovered/Resolved with Sequelae]
  - Lung disorder [Unknown]
  - Thrombocytopenia [Unknown]
  - Haemoglobin decreased [Unknown]

NARRATIVE: CASE EVENT DATE: 20170414
